FAERS Safety Report 10763714 (Version 1)
Quarter: 2015Q1

REPORT INFORMATION
  Report Type: Spontaneous
  Country: CH (occurrence: CH)
  Receive Date: 20150204
  Receipt Date: 20150204
  Transmission Date: 20150721
  Serious: Yes (Hospitalization, Other)
  Sender: FDA-Public Use
  Company Number: CH-009507513-1501CHE012248

PATIENT
  Age: 60 Year
  Sex: Female

DRUGS (15)
  1. STILNOX [Concomitant]
     Active Substance: ZOLPIDEM TARTRATE
  2. SPIRIVA [Concomitant]
     Active Substance: TIOTROPIUM BROMIDE MONOHYDRATE
  3. REMERON [Suspect]
     Active Substance: MIRTAZAPINE
     Indication: DEPRESSION
     Dosage: 30 MG, QD
     Route: 048
     Dates: end: 201409
  4. DAFALGAN [Suspect]
     Active Substance: ACETAMINOPHEN
     Indication: ARTHRALGIA
     Dosage: 500 MG, FOUR PER DAY
     Route: 048
     Dates: start: 201207, end: 201409
  5. FERINJECT [Concomitant]
     Active Substance: FERRIC CARBOXYMALTOSE
  6. CALCIUM ACETATE. [Concomitant]
     Active Substance: CALCIUM ACETATE
  7. SYMBICORT [Concomitant]
     Active Substance: BUDESONIDE\FORMOTEROL FUMARATE DIHYDRATE
  8. CONCOR [Concomitant]
     Active Substance: BISOPROLOL FUMARATE
  9. ROCALTROL [Concomitant]
     Active Substance: CALCITRIOL
  10. CHOLECALCIFEROL [Concomitant]
     Active Substance: CHOLECALCIFEROL
  11. ZYLORIC [Concomitant]
     Active Substance: ALLOPURINOL
  12. PANTOZOL [Concomitant]
     Active Substance: PANTOPRAZOLE SODIUM
  13. FOSRENOL [Concomitant]
     Active Substance: LANTHANUM CARBONATE
  14. FOSAMAX [Concomitant]
     Active Substance: ALENDRONATE SODIUM
     Route: 048
  15. LEXOTANIL [Concomitant]
     Active Substance: BROMAZEPAM

REACTIONS (5)
  - Hypoglycaemia [Recovered/Resolved]
  - Metabolic encephalopathy [Recovered/Resolved]
  - Hepatocellular injury [Recovered/Resolved]
  - International normalised ratio increased [Recovered/Resolved]
  - Acute hepatic failure [Recovered/Resolved]

NARRATIVE: CASE EVENT DATE: 201409
